FAERS Safety Report 10231628 (Version 2)
Quarter: 2014Q2

REPORT INFORMATION
  Report Type: Other
  Country: US (occurrence: US)
  Receive Date: 20140611
  Receipt Date: 20140611
  Transmission Date: 20141212
  Serious: Yes (Hospitalization, Other)
  Sender: FDA-Public Use
  Company Number: US-GSKPPD-2014GSK000707

PATIENT
  Age: 56 Year
  Sex: Male
  Weight: 108.96 kg

DRUGS (5)
  1. AVANDIA [Suspect]
     Indication: DIABETES MELLITUS
     Route: 048
  2. DIAMOX [Concomitant]
     Dosage: 1 TABET TWICE A DAY
     Route: 048
  3. POTASSIUM CHLORIDE [Concomitant]
  4. NIFEDIPINE [Concomitant]
  5. SIMVASTATIN [Concomitant]

REACTIONS (3)
  - Cardiac failure congestive [None]
  - Ventricular fibrillation [Recovered/Resolved]
  - Myocardial infarction [Recovered/Resolved]
